FAERS Safety Report 8932727 (Version 1)
Quarter: 2012Q4

REPORT INFORMATION
  Report Type: Report from Study
  Country: IN (occurrence: IN)
  Receive Date: 20121129
  Receipt Date: 20121129
  Transmission Date: 20130627
  Serious: Yes (Hospitalization)
  Sender: FDA-Public Use
  Company Number: IN-US-EMD SERONO, INC.-7170988

PATIENT
  Age: 33 Year
  Sex: Female
  Weight: 49 kg

DRUGS (3)
  1. GONAL-F [Suspect]
     Indication: IN VITRO FERTILISATION
     Route: 042
     Dates: start: 20111129, end: 20111207
  2. LUVERIS [Suspect]
     Indication: IN VITRO FERTILISATION
  3. LUVERIS [Suspect]
     Route: 042
     Dates: start: 20111204

REACTIONS (1)
  - Abortion missed [Recovered/Resolved]
